FAERS Safety Report 4608549-3 (Version None)
Quarter: 2005Q1

REPORT INFORMATION
  Report Type: 
  Country: None (occurrence: None)
  Receive Date: 20050311
  Receipt Date: 20050311
  Transmission Date: 20050727
  Serious: Yes (Hospitalization)
  Sender: FDA-Public Use
  Company Number: None

PATIENT
  Sex: Male

DRUGS (1)
  1. EPTIFIBATIDE [Suspect]
     Indication: ACUTE CORONARY SYNDROME
     Dosage: 180 MCG/KG  BOLUS  INTRAVENOUS ; 2 MCG/KG  MIN INTRAVENOUS
     Route: 042
     Dates: start: 20050214, end: 20050214

REACTIONS (1)
  - CEREBRAL HAEMORRHAGE [None]
